FAERS Safety Report 7100694-6 (Version None)
Quarter: 2010Q4

REPORT INFORMATION
  Report Type: 
  Country: None (occurrence: None)
  Receive Date: 20101113
  Receipt Date: 20100729
  Transmission Date: 20110411
  Serious: Yes (Life-Threatening, Hospitalization)
  Sender: FDA-Public Use
  Company Number: US-ALLERGAN-1002700US

PATIENT
  Age: 78 Year
  Sex: Male
  Weight: 71.202 kg

DRUGS (3)
  1. BOTOXA? [Suspect]
     Indication: MEIGE'S SYNDROME
     Dosage: 30 UNITS, SINGLE
     Dates: start: 20100226, end: 20100226
  2. BOTOXA? [Suspect]
     Dosage: UNK
     Dates: start: 20090901, end: 20090901
  3. BOTOXA? [Suspect]
     Dosage: UNK
     Dates: start: 20091201, end: 20091201

REACTIONS (2)
  - DRUG INEFFECTIVE [None]
  - DYSPHAGIA [None]
